FAERS Safety Report 9717190 (Version 2)
Quarter: 2014Q1

REPORT INFORMATION
  Report Type: Spontaneous
  Country: US (occurrence: US)
  Receive Date: 20131127
  Receipt Date: 20140115
  Transmission Date: 20141002
  Serious: Yes (Other)
  Sender: FDA-Public Use
  Company Number: US-TEVA-446575USA

PATIENT
  Age: 32 Year
  Sex: Female
  Weight: 69.92 kg

DRUGS (4)
  1. PARAGARD 380A [Suspect]
     Indication: CONTRACEPTION
     Route: 015
     Dates: start: 20110709, end: 20131203
  2. PARAGARD 380A [Suspect]
     Route: 015
  3. ZOLOFT [Concomitant]
  4. ADDERALL [Concomitant]

REACTIONS (1)
  - Device dislocation [Recovered/Resolved]
